FAERS Safety Report 15454262 (Version 5)
Quarter: 2019Q4

REPORT INFORMATION
  Report Type: Report from Study
  Country: CA (occurrence: CA)
  Receive Date: 20181002
  Receipt Date: 20191127
  Transmission Date: 20200122
  Serious: Yes (Death, Hospitalization, Other)
  Sender: FDA-Public Use
  Company Number: CA-BRISTOL-MYERS SQUIBB COMPANY-BMS-2018-087507

PATIENT
  Age: 75 Year
  Sex: Female

DRUGS (1)
  1. ABATACEPT [Suspect]
     Active Substance: ABATACEPT
     Indication: RHEUMATOID ARTHRITIS
     Dosage: 250 MG, Q4WK
     Route: 042
     Dates: start: 20140318

REACTIONS (5)
  - Colon cancer metastatic [Unknown]
  - Fall [Unknown]
  - Death [Fatal]
  - Hip fracture [Unknown]
  - Head injury [Unknown]

NARRATIVE: CASE EVENT DATE: 20180712
